FAERS Safety Report 22189504 (Version 1)
Quarter: 2023Q2

REPORT INFORMATION
  Report Type: Report from Study
  Country: US (occurrence: US)
  Receive Date: 20230410
  Receipt Date: 20230410
  Transmission Date: 20230722
  Serious: Yes (Hospitalization, Other)
  Sender: FDA-Public Use
  Company Number: US-ABBVIE-4720502

PATIENT
  Sex: Male

DRUGS (1)
  1. VENCLEXTA [Suspect]
     Active Substance: VENETOCLAX
     Indication: Acute myeloid leukaemia
     Route: 048
     Dates: start: 20230329

REACTIONS (4)
  - Pyrexia [Unknown]
  - Transfusion [Unknown]
  - Dehydration [Unknown]
  - Platelet transfusion [Unknown]

NARRATIVE: CASE EVENT DATE: 20230101
